FAERS Safety Report 15651467 (Version 1)
Quarter: 2018Q4

REPORT INFORMATION
  Report Type: Spontaneous
  Country: US (occurrence: US)
  Receive Date: 20181123
  Receipt Date: 20181123
  Transmission Date: 20190205
  Serious: No
  Sender: FDA-Public Use
  Company Number: US-BRISTOL-MYERS SQUIBB COMPANY-BMS-2018-110323

PATIENT
  Sex: Female

DRUGS (1)
  1. ORENCIA [Suspect]
     Active Substance: ABATACEPT
     Indication: RHEUMATOID ARTHRITIS
     Dosage: 500
     Route: 065
     Dates: start: 201507

REACTIONS (4)
  - C-reactive protein abnormal [Unknown]
  - Rheumatoid arthritis [Unknown]
  - Gait disturbance [Unknown]
  - Weight decreased [Unknown]
